FAERS Safety Report 9559580 (Version 1)
Quarter: 2013Q3

REPORT INFORMATION
  Report Type: Spontaneous
  Country: US (occurrence: None)
  Receive Date: 20130913
  Receipt Date: 20130913
  Transmission Date: 20140515
  Serious: Yes (Other)
  Sender: FDA-Public Use
  Company Number: 1000044473

PATIENT
  Age: 71 Year
  Sex: Male

DRUGS (6)
  1. DALIRESP [Suspect]
     Indication: CHRONIC OBSTRUCTIVE PULMONARY DISEASE
     Route: 048
     Dates: start: 2011
  2. ADVAIR (SERETIDE) (SERETIDE) [Concomitant]
  3. SPIRIVA (TIOTROPIUM BROMIDE) (TIOTROPIUM BROMIDE) [Concomitant]
  4. XANAX [Concomitant]
  5. LEXAPRO (ESCITALOPRAM OXALATE) (ESCITALOPRAM OXALATE) [Concomitant]
  6. METOPROLOL (METOPROLOL) (METOPROLOL) [Concomitant]

REACTIONS (3)
  - Anxiety [None]
  - Depression [None]
  - Insomnia [None]
